FAERS Safety Report 21142163 (Version 2)
Quarter: 2022Q3

REPORT INFORMATION
  Report Type: Spontaneous
  Country: US (occurrence: US)
  Receive Date: 20220728
  Receipt Date: 20220810
  Transmission Date: 20221027
  Serious: Yes (Hospitalization)
  Sender: FDA-Public Use
  Company Number: US-TEVA-2022-US-2057828

PATIENT
  Age: 34 Year
  Sex: Male

DRUGS (1)
  1. FENTANYL [Suspect]
     Active Substance: FENTANYL
     Indication: Drug abuse
     Route: 065

REACTIONS (3)
  - Hepatitis B [Recovering/Resolving]
  - Central nervous system vasculitis [Recovering/Resolving]
  - Drug abuse [Unknown]
